FAERS Safety Report 5366765-X (Version None)
Quarter: 2007Q2

REPORT INFORMATION
  Report Type: 
  Country: None (occurrence: None)
  Receive Date: 20070622
  Receipt Date: 20060629
  Transmission Date: 20071010
  Serious: No
  Sender: FDA-Public Use
  Company Number: US-ASTRAZENECA-2006UW13683

PATIENT
  Age: 41 Year
  Sex: Female
  Weight: 61.2 kg

DRUGS (1)
  1. RHINOCORT [Suspect]
     Indication: SEASONAL ALLERGY
     Route: 045
     Dates: start: 20060401

REACTIONS (1)
  - RASH [None]
